FAERS Safety Report 11637606 (Version 1)
Quarter: 2015Q4

REPORT INFORMATION
  Report Type: Spontaneous
  Country: JP (occurrence: JP)
  Receive Date: 20151016
  Receipt Date: 20151016
  Transmission Date: 20160304
  Serious: Yes (Other)
  Sender: FDA-Public Use
  Company Number: JP-ELI_LILLY_AND_COMPANY-JP201510002705

PATIENT
  Age: 58 Year
  Sex: Female

DRUGS (1)
  1. GEMZAR [Suspect]
     Active Substance: GEMCITABINE HYDROCHLORIDE
     Indication: PANCREATIC CARCINOMA
     Route: 042

REACTIONS (5)
  - Sepsis [Recovering/Resolving]
  - Febrile neutropenia [Unknown]
  - Acute myelomonocytic leukaemia [Unknown]
  - Candida infection [Recovered/Resolved]
  - Anastomotic ulcer [Unknown]
